FAERS Safety Report 4852751-2 (Version None)
Quarter: 2005Q4

REPORT INFORMATION
  Report Type: 
  Country: None (occurrence: None)
  Receive Date: 20051125
  Receipt Date: 20050825
  Transmission Date: 20060501
  Serious: Yes (Hospitalization, Other)
  Sender: FDA-Public Use
  Company Number: HQWYE131926AUG05

PATIENT
  Age: 51 Year
  Sex: Female

DRUGS (4)
  1. ZOSYN [Suspect]
     Indication: DIVERTICULITIS
     Dosage: INTRAVENOUS
     Route: 042
     Dates: start: 20050620
  2. FLAGYL [Concomitant]
  3. CLAFORAN [Concomitant]
  4. BACTRIM [Concomitant]

REACTIONS (3)
  - HYPERSENSITIVITY [None]
  - HYPOTENSION [None]
  - SYNCOPE [None]
